FAERS Safety Report 21240172 (Version 2)
Quarter: 2022Q3

REPORT INFORMATION
  Report Type: Report from Study
  Country: MX (occurrence: MX)
  Receive Date: 20220822
  Receipt Date: 20220912
  Transmission Date: 20221027
  Serious: Yes (Death, Hospitalization, Other)
  Sender: FDA-Public Use
  Company Number: MX-BRISTOL-MYERS SQUIBB COMPANY-2022-083866

PATIENT
  Age: 80 Year
  Sex: Male
  Weight: 59 kg

DRUGS (7)
  1. DOCETAXEL [Suspect]
     Active Substance: DOCETAXEL
     Indication: Hormone-refractory prostate cancer
     Route: 065
     Dates: start: 20210813, end: 20220221
  2. DOCETAXEL [Suspect]
     Active Substance: DOCETAXEL
     Dosage: MOST RECENT DOSE 119.25 MG ON 21-FEB-2022
     Route: 065
     Dates: start: 20220221
  3. PREDNISONE [Suspect]
     Active Substance: PREDNISONE
     Indication: Prostate cancer
     Dosage: MOST RECENT DOSE OF PREDNISONE ON 01-SEP-2021
     Route: 065
     Dates: start: 20210813, end: 20210901
  4. PAROXETINE [Concomitant]
     Active Substance: PAROXETINE
     Indication: Product used for unknown indication
     Dosage: ONGOING
     Route: 048
     Dates: start: 20210902
  5. ALPRAZOLAM [Concomitant]
     Active Substance: ALPRAZOLAM
     Indication: Product used for unknown indication
     Dosage: ONGOING
     Route: 048
     Dates: start: 20210902
  6. TAMSULOSIN [Concomitant]
     Active Substance: TAMSULOSIN
     Indication: Product used for unknown indication
     Dosage: ONGOING
     Route: 048
     Dates: start: 20210101
  7. TRAMADOL [Concomitant]
     Active Substance: TRAMADOL
     Indication: Product used for unknown indication
     Dosage: ONGOING
     Route: 048
     Dates: start: 20220207

REACTIONS (2)
  - Urinary tract infection [Recovering/Resolving]
  - Death [Fatal]

NARRATIVE: CASE EVENT DATE: 20220729
